FAERS Safety Report 4879458-X (Version None)
Quarter: 2005Q4

REPORT INFORMATION
  Report Type: 
  Country: None (occurrence: None)
  Receive Date: 20051209
  Receipt Date: 20050513
  Transmission Date: 20060501
  Serious: Yes (Death)
  Sender: FDA-Public Use
  Company Number: USA-2002-0000583

PATIENT
  Age: 27 Year
  Sex: Female

DRUGS (4)
  1. OXYCONTIN [Suspect]
  2. ALPRAZOLAM [Suspect]
  3. CARISOPRODOL [Suspect]
  4. MEPROBAMATE [Suspect]

REACTIONS (1)
  - MULTIPLE DRUG OVERDOSE ACCIDENTAL [None]
